FAERS Safety Report 11335693 (Version 1)
Quarter: 2015Q3

REPORT INFORMATION
  Report Type: Spontaneous
  Country: DE (occurrence: DE)
  Receive Date: 20150804
  Receipt Date: 20150804
  Transmission Date: 20151125
  Serious: Yes (Other)
  Sender: FDA-Public Use
  Company Number: DE-PFIZER INC-2015252988

PATIENT
  Age: 1 Day
  Sex: Male
  Weight: 3 kg

DRUGS (10)
  1. VENLAFAXINE HCL [Suspect]
     Active Substance: VENLAFAXINE HYDROCHLORIDE
     Indication: DEPRESSION
     Dosage: 225 MG, 1X/DAY
     Route: 064
  2. FOLIC ACID. [Concomitant]
     Active Substance: FOLIC ACID
     Indication: PROPHYLAXIS OF NEURAL TUBE DEFECT
     Dosage: 0 - 23.4 GESTATIONAL WEEK
     Route: 064
  3. VOMEX A SUPPOSITORIEN [Concomitant]
     Indication: VOMITING IN PREGNANCY
     Dosage: 6.3 - 37.1 GESTATIONAL WEEK
     Route: 064
  4. LYRICA [Suspect]
     Active Substance: PREGABALIN
     Indication: ANXIETY DISORDER
  5. TIANEURAX [Suspect]
     Active Substance: TIANEPTINE SODIUM
     Indication: DEPRESSION
     Dosage: 12.5 MG, 2X/DAY
     Route: 064
  6. VENLAFAXINE HCL [Suspect]
     Active Substance: VENLAFAXINE HYDROCHLORIDE
     Indication: ANXIETY DISORDER
  7. TIANEURAX [Suspect]
     Active Substance: TIANEPTINE SODIUM
     Indication: ANXIETY DISORDER
  8. BISOPROLOL [Concomitant]
     Active Substance: BISOPROLOL
     Indication: SINUS TACHYCARDIA
     Dosage: UNK, AS NEEDED (ONLY IS REQUIRED)
     Route: 064
  9. VOMEX A SUPPOSITORIEN [Concomitant]
     Indication: NAUSEA
  10. LYRICA [Suspect]
     Active Substance: PREGABALIN
     Indication: DEPRESSION
     Dosage: 75 MG, 1X/DAY
     Route: 064

REACTIONS (2)
  - Maternal exposure during pregnancy [Recovered/Resolved]
  - Agitation neonatal [Recovered/Resolved]

NARRATIVE: CASE EVENT DATE: 20150605
